FAERS Safety Report 19763709 (Version 3)
Quarter: 2022Q1

REPORT INFORMATION
  Report Type: Spontaneous
  Country: US (occurrence: US)
  Receive Date: 20210830
  Receipt Date: 20220309
  Transmission Date: 20220423
  Serious: No
  Sender: FDA-Public Use
  Company Number: US-PFIZER INC-202100992878

PATIENT
  Age: 9 Year
  Sex: Male
  Weight: 21.77 kg

DRUGS (1)
  1. GENOTROPIN [Suspect]
     Active Substance: SOMATROPIN
     Indication: Weight decreased
     Dosage: 0.8 MG, DAILY
     Dates: start: 202103

REACTIONS (5)
  - Gluten sensitivity [Unknown]
  - Off label use [Unknown]
  - Drug dose omission by device [Unknown]
  - Device use error [Unknown]
  - Device issue [Unknown]

NARRATIVE: CASE EVENT DATE: 20210101
